FAERS Safety Report 25537470 (Version 1)
Quarter: 2025Q3

REPORT INFORMATION
  Report Type: Spontaneous
  Country: CN (occurrence: CN)
  Receive Date: 20250710
  Receipt Date: 20250710
  Transmission Date: 20251021
  Serious: Yes (Other)
  Sender: Pangea Pharmaceuticals
  Company Number: CN-PANGEAPHARMA-2025PAN00008

PATIENT
  Sex: Male

DRUGS (5)
  1. DEXAMETHASONE [Suspect]
     Active Substance: DEXAMETHASONE
     Indication: Meniere^s disease
  2. BETAHISTINE [Concomitant]
     Active Substance: BETAHISTINE
     Route: 048
  3. BETAHISTINE [Concomitant]
     Active Substance: BETAHISTINE
  4. METHYLCOBALAMIN [Concomitant]
     Active Substance: METHYLCOBALAMIN
     Route: 048
  5. METHYLCOBALAMIN [Concomitant]
     Active Substance: METHYLCOBALAMIN

REACTIONS (2)
  - Tympanic membrane perforation [Not Recovered/Not Resolved]
  - Otitis externa fungal [Recovered/Resolved]
